FAERS Safety Report 12434212 (Version 1)
Quarter: 2016Q2

REPORT INFORMATION
  Report Type: Spontaneous
  Country: GB (occurrence: GB)
  Receive Date: 20160603
  Receipt Date: 20160603
  Transmission Date: 20160815
  Serious: Yes (Hospitalization, Disabling)
  Sender: FDA-Public Use
  Company Number: GB-SA-2016SA102441

PATIENT
  Age: 87 Year
  Sex: Female
  Weight: 62.3 kg

DRUGS (3)
  1. THYROGEN [Suspect]
     Active Substance: THYROTROPIN ALFA
     Route: 065
  2. THYROGEN [Suspect]
     Active Substance: THYROTROPIN ALFA
     Route: 065
     Dates: start: 20160318
  3. LEVOTHYROXINE. [Concomitant]
     Active Substance: LEVOTHYROXINE

REACTIONS (3)
  - Malaise [Recovered/Resolved]
  - Vomiting [Unknown]
  - Confusional state [Unknown]

NARRATIVE: CASE EVENT DATE: 201603
